FAERS Safety Report 4441398-8 (Version None)
Quarter: 2004Q3

REPORT INFORMATION
  Report Type: 
  Country: None (occurrence: None)
  Receive Date: 20040728
  Receipt Date: 20040219
  Transmission Date: 20050211
  Serious: No
  Sender: FDA-Public Use
  Company Number: USA040259895

PATIENT
  Age: 20 Year
  Sex: Male
  Weight: 93 kg

DRUGS (3)
  1. STRATTERA [Suspect]
     Indication: ATTENTION DEFICIT/HYPERACTIVITY DISORDER
     Dosage: 40 MG IN THE MORNING
     Dates: start: 20031201
  2. TYLENOL [Concomitant]
  3. ADVIL [Concomitant]

REACTIONS (3)
  - ANGER [None]
  - HEADACHE [None]
  - NERVOUSNESS [None]
